FAERS Safety Report 20997889 (Version 1)
Quarter: 2022Q2

REPORT INFORMATION
  Report Type: Spontaneous
  Country: AU (occurrence: AU)
  Receive Date: 20220623
  Receipt Date: 20220623
  Transmission Date: 20220720
  Serious: Yes (Other)
  Sender: FDA-Public Use
  Company Number: AU-PFIZER INC-202200869244

PATIENT
  Age: 53 Year
  Sex: Female

DRUGS (4)
  1. ADRIAMYCIN [Suspect]
     Active Substance: DOXORUBICIN HYDROCHLORIDE
     Indication: Invasive lobular breast carcinoma
     Dosage: UNK
     Dates: start: 201001
  2. CYCLOPHOSPHAMIDE [Suspect]
     Active Substance: CYCLOPHOSPHAMIDE
     Indication: Invasive lobular breast carcinoma
     Dosage: UNK
     Dates: start: 201001
  3. PACLITAXEL [Suspect]
     Active Substance: PACLITAXEL
     Indication: Invasive lobular breast carcinoma
     Dosage: UNK UNK, WEEKLY
     Dates: start: 201001
  4. TAMOXIFEN [Suspect]
     Active Substance: TAMOXIFEN
     Indication: Invasive lobular breast carcinoma
     Dosage: UNK
     Dates: start: 201001

REACTIONS (2)
  - Pelvic pain [Unknown]
  - Neoplasm progression [Unknown]

NARRATIVE: CASE EVENT DATE: 20180201
